FAERS Safety Report 4730357-3 (Version None)
Quarter: 2005Q3

REPORT INFORMATION
  Report Type: 
  Country: None (occurrence: None)
  Receive Date: 20050801
  Receipt Date: 20050419
  Transmission Date: 20060218
  Serious: Yes (Hospitalization, Other)
  Sender: FDA-Public Use
  Company Number: US-MERCK-0504USA03730

PATIENT
  Age: 68 Year
  Sex: Male
  Weight: 107 kg

DRUGS (15)
  1. VIOXX [Suspect]
     Indication: SCIATICA
     Route: 048
     Dates: start: 20010801, end: 20040930
  2. LIPITOR [Concomitant]
     Route: 065
  3. TRIAMTERENE [Concomitant]
     Route: 065
  4. PROSCAR [Concomitant]
     Route: 065
  5. LOPRESSOR [Concomitant]
     Route: 065
     Dates: end: 20030407
  6. URECHOLINE [Concomitant]
     Route: 065
  7. MAXZIDE [Concomitant]
     Route: 065
  8. XANAX [Concomitant]
     Route: 065
  9. VITAMINS (UNSPECIFIED) [Concomitant]
     Route: 065
  10. VITAMIN E [Concomitant]
     Route: 065
  11. POTASSIUM GLUCONATE [Concomitant]
     Route: 065
  12. ASPIRIN [Concomitant]
     Route: 065
  13. CYANOCOBALAMIN [Concomitant]
     Route: 065
  14. TYLENOL (CAPLET) [Concomitant]
     Route: 065
  15. ZANTAC [Concomitant]
     Route: 065

REACTIONS (25)
  - ATRIAL FIBRILLATION [None]
  - BLOOD CREATININE INCREASED [None]
  - BLOOD UREA INCREASED [None]
  - BUNDLE BRANCH BLOCK LEFT [None]
  - CARDIAC FAILURE CONGESTIVE [None]
  - CEREBRAL ATROPHY [None]
  - CEREBROVASCULAR ACCIDENT [None]
  - CORONARY ARTERY DISEASE [None]
  - DEHYDRATION [None]
  - DIABETES MELLITUS [None]
  - EXCORIATION [None]
  - GASTRITIS [None]
  - HAEMORRHOIDS [None]
  - HEPATIC CYST [None]
  - ILEUS [None]
  - MEMORY IMPAIRMENT [None]
  - MYOCARDIAL INFARCTION [None]
  - OEDEMA [None]
  - POST PROCEDURAL COMPLICATION [None]
  - PROSTATISM [None]
  - RENAL CYST [None]
  - RHABDOMYOLYSIS [None]
  - SUPRAVENTRICULAR TACHYCARDIA [None]
  - SYSTOLIC HYPERTENSION [None]
  - VENTRICULAR TACHYCARDIA [None]
